FAERS Safety Report 24923024 (Version 1)
Quarter: 2025Q1

REPORT INFORMATION
  Report Type: Spontaneous
  Country: US (occurrence: None)
  Receive Date: 20250204
  Receipt Date: 20250204
  Transmission Date: 20250409
  Serious: Yes (Other)
  Sender: FDA-CTU
  Company Number: None

PATIENT
  Sex: Male

DRUGS (1)
  1. MUCINEX SINUS-MAX SEVERE CONGESTION RELIEF NOS [Suspect]
     Active Substance: UNSPECIFIED INGREDIENT
     Indication: Cough
     Dates: start: 20250131, end: 20250131

REACTIONS (4)
  - Loss of consciousness [None]
  - Diarrhoea [None]
  - Fall [None]
  - Product quality issue [None]

NARRATIVE: CASE EVENT DATE: 20250131
